FAERS Safety Report 8270986 (Version 6)
Quarter: 2013Q2

REPORT INFORMATION
  Report Type: Spontaneous
  Country: US (occurrence: US)
  Receive Date: 20111201
  Receipt Date: 20130607
  Transmission Date: 20140414
  Serious: Yes (Hospitalization, Congenital Anomaly, Other)
  Sender: FDA-Public Use
  Company Number: US-PFIZER INC-2011285842

PATIENT
  Sex: Male
  Weight: 3.6 kg

DRUGS (7)
  1. ZOLOFT [Suspect]
     Indication: DEPRESSION
     Dosage: UNK
     Route: 064
     Dates: start: 20081121
  2. ZOLOFT [Suspect]
     Dosage: 100 MG, EVERYDAY
     Route: 064
     Dates: start: 20090211
  3. SERTRALINE HCL [Suspect]
     Dosage: UNK
     Route: 064
  4. EFFEXOR [Suspect]
     Dosage: UNK
     Route: 064
  5. VENLAFAXINE HCL [Suspect]
     Dosage: UNK
     Route: 064
  6. PRENATAL VITAMINS [Concomitant]
     Dosage: UNK
     Route: 064
  7. EFFEXOR [Concomitant]
     Dosage: UNK
     Route: 064

REACTIONS (20)
  - Maternal exposure timing unspecified [Unknown]
  - Craniosynostosis [Not Recovered/Not Resolved]
  - Pierre Robin syndrome [Not Recovered/Not Resolved]
  - Upper airway obstruction [Unknown]
  - Feeding disorder [Unknown]
  - Failure to thrive [Unknown]
  - Retrognathia [Unknown]
  - Gastrooesophageal reflux disease [Unknown]
  - Concussion [Unknown]
  - Apert^s syndrome [Unknown]
  - Cleft palate [Unknown]
  - Otitis media [Unknown]
  - Hypospadias [Unknown]
  - Congenital acrochordon [Unknown]
  - Atrial septal defect [Unknown]
  - Developmental delay [Not Recovered/Not Resolved]
  - Micrognathia [Unknown]
  - Ankyloglossia congenital [Unknown]
  - Bronchial hyperreactivity [Recovered/Resolved]
  - Circumcision [Unknown]
